FAERS Safety Report 8209837-4 (Version None)
Quarter: 2012Q1

REPORT INFORMATION
  Report Type: 
  Country: None (occurrence: None)
  Receive Date: 20120314
  Receipt Date: 20120305
  Transmission Date: 20120608
  Serious: Yes (Hospitalization)
  Sender: FDA-Public Use
  Company Number: PHHY2012JP020481

PATIENT
  Sex: Male
  Weight: 67 kg

DRUGS (86)
  1. PROGRAF [Suspect]
     Dosage: 4.7 MG, UNK
     Route: 048
     Dates: start: 20090722, end: 20090722
  2. PROGRAF [Suspect]
     Dosage: 3.7 MG, UNK
     Route: 048
     Dates: start: 20090817, end: 20090901
  3. PROGRAF [Suspect]
     Dosage: 5 MG, UNK
     Route: 048
     Dates: start: 20090902, end: 20090913
  4. PROGRAF [Suspect]
     Dosage: 2.47 MG, UNK
     Route: 048
     Dates: start: 20090914, end: 20090914
  5. PROGRAF [Suspect]
     Dosage: 7.7 MG, UNK
     Route: 048
     Dates: start: 20091216
  6. PROGRAF [Suspect]
     Dosage: 5.2 MG, UNK
     Dates: start: 20100712
  7. HALOPERIDOL [Concomitant]
     Dosage: 2.5 MG, UNK
     Route: 048
  8. CEFOPERAZONE SODIUM [Concomitant]
     Dosage: 1 G, UNK
     Route: 042
     Dates: start: 20090920, end: 20090926
  9. ARMODAFINIL [Concomitant]
     Dosage: UNK UKN, UNK
     Route: 048
     Dates: start: 20091228
  10. CERTICAN [Suspect]
     Dosage: 1 MG, UNK
     Route: 048
     Dates: start: 20090807, end: 20090807
  11. CERTICAN [Suspect]
     Dosage: 0.75 MG, UNK
     Route: 048
     Dates: start: 20100416
  12. PROGRAF [Suspect]
     Dosage: 6 MG, UNK
     Route: 048
     Dates: start: 20090922, end: 20090924
  13. PROGRAF [Suspect]
     Dosage: 6.4 MG, UNK
     Route: 048
     Dates: start: 20100122, end: 20100127
  14. PROGRAF [Suspect]
     Dosage: 5.4 MG, UNK
     Route: 048
     Dates: start: 20100621, end: 20100711
  15. PREDNISOLONE [Suspect]
     Indication: HEART TRANSPLANT
     Dosage: 2.5 MG, UNK
     Route: 048
     Dates: start: 20090106, end: 20090902
  16. PREDNISOLONE [Suspect]
     Dosage: 10 MG, UNK
     Route: 048
     Dates: start: 20090903, end: 20100326
  17. RISPERDAL [Concomitant]
     Dosage: 3 MG, UNK
     Route: 048
     Dates: start: 20080814
  18. NOVOLIN R [Concomitant]
     Dosage: UNK UKN, UNK
     Route: 058
     Dates: start: 20100119
  19. ARMODAFINIL [Concomitant]
     Dosage: 200 MG, UNK
     Route: 048
     Dates: start: 20091211
  20. CERTICAN [Suspect]
     Dosage: 0.75 MG, UNK
     Route: 048
     Dates: start: 20090810
  21. CERTICAN [Suspect]
     Dosage: 0.5 MG, UNK
     Route: 048
     Dates: start: 20100316, end: 20100415
  22. PROGRAF [Suspect]
     Indication: HEART TRANSPLANT
     Dosage: 5 MG, UNK
     Route: 048
     Dates: start: 20090718, end: 20090721
  23. PROGRAF [Suspect]
     Dosage: 4 MG, UNK
     Route: 048
     Dates: start: 20090815, end: 20090816
  24. PROGRAF [Suspect]
     Dosage: 6.7 MG, UNK
     Route: 048
     Dates: start: 20011022, end: 20091108
  25. PROGRAF [Suspect]
     Dosage: 6 MG, UNK
     Route: 048
     Dates: start: 20100328, end: 20100406
  26. AKINETON [Suspect]
     Dosage: 3 MG, UNK
     Route: 048
     Dates: start: 20080814, end: 20090824
  27. RISPERDAL [Concomitant]
     Dosage: 3 MG, UNK
     Route: 048
  28. PRIMOBOLAN-DEPOT INJ [Concomitant]
     Dosage: 15 MG, UNK
     Route: 048
     Dates: start: 20090917
  29. CLINDAMYCIN PHOSPHATE [Concomitant]
     Dosage: UNK UKN, UNK
  30. MYCOPHENOLATE MOFETIL (CELLCEPT) [Concomitant]
     Dosage: UNK UKN, UNK
  31. CERTICAN [Suspect]
     Dosage: 1 MG, UNK
     Route: 048
     Dates: start: 20090812, end: 20090824
  32. PROGRAF [Suspect]
     Dosage: 4.9 MG, UNK
     Route: 048
     Dates: start: 20090916, end: 20090916
  33. PROGRAF [Suspect]
     Dosage: 6.5 MG, UNK
     Route: 048
     Dates: start: 20090925, end: 20091001
  34. PROGRAF [Suspect]
     Dosage: 6.4 MG, UNK
     Route: 048
     Dates: start: 20091005, end: 20091021
  35. PROGRAF [Suspect]
     Dosage: 7 MG, UNK
     Route: 048
     Dates: start: 20100104
  36. PROGRAF [Suspect]
     Dosage: 6 MG, UNK
     Route: 048
     Dates: start: 20100526, end: 20100620
  37. PREDNISOLONE [Suspect]
     Dosage: 7.5 MG, UNK
     Route: 048
     Dates: start: 20100327, end: 20100401
  38. RISPERDAL [Concomitant]
     Dosage: 3.5 MG, UNK
     Route: 048
  39. LIPITOR [Concomitant]
     Dosage: 10 MG, UNK
     Route: 048
     Dates: start: 20100128
  40. VFEND [Concomitant]
     Dosage: 300 MG, UNK
     Route: 048
     Dates: start: 20091214, end: 20091224
  41. CERTICAN [Suspect]
     Dosage: 0.5 MG, UNK
     Route: 048
     Dates: start: 20091014, end: 20091014
  42. CERTICAN [Suspect]
     Dosage: 1 MG, UNK
     Route: 048
     Dates: start: 20100220, end: 20100308
  43. PROGRAF [Suspect]
     Dosage: 5.7 MG, UNK
     Route: 048
     Dates: start: 20090921, end: 20090921
  44. AKINETON [Suspect]
     Dosage: 3 MG, UNK
     Route: 048
     Dates: start: 20090831, end: 20090901
  45. TRAZODONE HYDROCHLORIDE [Concomitant]
     Dosage: 25 MG, UNK
     Route: 048
  46. DAI-KENCHU [Concomitant]
     Dosage: UNK UKN, UNK
     Route: 048
     Dates: start: 20090824, end: 20090901
  47. BISOPROLOL FUMARATE [Concomitant]
     Dosage: 2.5 MG, UNK
     Route: 048
     Dates: start: 20090907
  48. ROCEPHIN [Concomitant]
     Dosage: UNK UKN, UNK
     Dates: start: 20100401, end: 20100402
  49. CERTICAN [Suspect]
     Dosage: 0.5 MG, UNK
     Route: 048
     Dates: start: 20090808, end: 20090809
  50. CERTICAN [Suspect]
     Dosage: 1.25 MG, UNK
     Route: 048
     Dates: start: 20090825, end: 20090826
  51. CERTICAN [Suspect]
     Dosage: 0.5 MG, UNK
     Route: 048
     Dates: start: 20091016, end: 20091016
  52. CLONAZEPAM [Suspect]
  53. PROGRAF [Suspect]
     Dosage: 4.2 MG, UNK
     Route: 048
     Dates: start: 20090810, end: 20090814
  54. PROGRAF [Suspect]
     Dosage: 4.7 MG, UNK
     Route: 048
     Dates: start: 20100128, end: 20100215
  55. PROGRAF [Suspect]
     Dosage: 5.8 MG, UNK
     Route: 048
     Dates: start: 20100326, end: 20100327
  56. CEFAZOLIN SODIUM [Concomitant]
     Dosage: 3 G, UNK
     Route: 042
     Dates: start: 20090801, end: 20090810
  57. VANCOMYCIN HYDROCHLORIDE [Concomitant]
     Dosage: 1500 MG, UNK
     Route: 042
     Dates: start: 20090811, end: 20090817
  58. ACYCLOVIR [Concomitant]
     Dosage: 750 MG, UNK
     Route: 042
     Dates: start: 20100410, end: 20100421
  59. AMARYL [Concomitant]
     Dosage: 0.5 MG, UNK
     Route: 048
     Dates: start: 20100716
  60. CERTICAN [Suspect]
     Dosage: 1 MG, UNK
     Route: 048
     Dates: start: 20090827, end: 20090901
  61. CERTICAN [Suspect]
     Dosage: 1 MG, UNK
     Route: 048
     Dates: start: 20091015, end: 20091015
  62. CERTICAN [Suspect]
     Dosage: 0.75 MG, UNK
     Route: 048
     Dates: start: 20100309, end: 20100315
  63. PROGRAF [Suspect]
     Dosage: 6.2 MG, UNK
     Route: 048
     Dates: start: 20091002, end: 20091004
  64. PROGRAF [Suspect]
     Dosage: 6.4 MG, UNK
     Route: 048
     Dates: start: 20091109
  65. PROGRAF [Suspect]
     Dosage: 5.6 MG, UNK
     Route: 048
     Dates: start: 20100216, end: 20100325
  66. PROGRAF [Suspect]
     Dosage: 5 MG, UNK
     Route: 048
     Dates: start: 20100407
  67. PROGRAF [Suspect]
     Dosage: 5.8 MG, UNK
     Route: 048
     Dates: start: 20100409
  68. PREDNISOLONE [Suspect]
     Dosage: 5 MG, UNK
     Route: 048
     Dates: start: 20100424, end: 20100501
  69. MEROPENEM [Suspect]
     Dosage: 1.5 MG, UNK
     Route: 042
     Dates: start: 20090811, end: 20090824
  70. MEROPENEM [Suspect]
     Dosage: UNK UKN, UNK
     Route: 042
  71. RISPERDAL [Concomitant]
     Dosage: 1 MG, UNK
     Route: 048
  72. RISPERDAL [Concomitant]
     Dosage: 2 MG, UNK
     Route: 048
  73. TRAZODONE HYDROCHLORIDE [Concomitant]
     Dosage: 50 MG, UNK
     Route: 048
     Dates: start: 20090831
  74. HALOPERIDOL [Concomitant]
     Dosage: 5 MG, UNK
     Route: 048
     Dates: start: 20090902, end: 20090905
  75. MAGNESIUM SULFATE [Concomitant]
     Dosage: 660 MG, UNK
     Route: 048
     Dates: start: 20090822, end: 20090901
  76. CLONAZEPAM [Concomitant]
     Dosage: 1 MG, UNK
     Route: 048
     Dates: start: 20090908
  77. DOGMATYL [Concomitant]
     Dosage: 100 MG, UNK
     Route: 048
  78. CERTICAN [Suspect]
     Indication: HEART TRANSPLANT
     Dosage: 1.5 MG, UNK
     Dates: start: 20090730, end: 20090806
  79. PROGRAF [Suspect]
     Dosage: 4.4 MG, UNK
     Route: 048
     Dates: start: 20090723, end: 20090809
  80. PROGRAF [Suspect]
     Dosage: 4.4 MG, UNK
     Route: 048
     Dates: start: 20090915, end: 20090915
  81. PROGRAF [Suspect]
     Dosage: 5.4 MG, UNK
     Route: 048
     Dates: start: 20090917, end: 20090920
  82. PREDNISOLONE [Suspect]
     Dosage: UNK UKN, UNK
     Route: 048
     Dates: start: 20100528
  83. MEROPENEM [Suspect]
     Dosage: 1.5 MG, UNK
     Route: 042
     Dates: start: 20090831, end: 20090909
  84. RISPERDAL [Concomitant]
     Dosage: 3 MG, UNK
     Route: 048
  85. AMLODIPINE [Concomitant]
     Dosage: 5 MG, UNK
     Route: 048
     Dates: start: 20090909
  86. GLIMICRON [Concomitant]
     Dosage: 20 MG, UNK
     Route: 048
     Dates: start: 20100227, end: 20100621

REACTIONS (7)
  - PLATELET COUNT DECREASED [None]
  - HERPES ZOSTER [None]
  - PNEUMONIA ASPIRATION [None]
  - ILEUS [None]
  - ASPERGILLOSIS ORAL [None]
  - DIABETES MELLITUS [None]
  - ALTERED STATE OF CONSCIOUSNESS [None]
